FAERS Safety Report 6638908-9 (Version None)
Quarter: 2010Q1

REPORT INFORMATION
  Report Type: 
  Country: None (occurrence: None)
  Receive Date: 20100317
  Receipt Date: 20100304
  Transmission Date: 20100710
  Serious: Yes (Hospitalization)
  Sender: FDA-Public Use
  Company Number: PHHO2010JP03451

PATIENT
  Age: 19 Month
  Sex: Male

DRUGS (1)
  1. TASIGNA [Suspect]
     Dosage: UNK
     Dates: start: 20100227

REACTIONS (1)
  - ACCIDENTAL EXPOSURE [None]
